FAERS Safety Report 23227423 (Version 1)
Quarter: 2023Q4

REPORT INFORMATION
  Report Type: Report from Study
  Country: US (occurrence: US)
  Receive Date: 20231124
  Receipt Date: 20231124
  Transmission Date: 20240110
  Serious: No
  Sender: FDA-Public Use
  Company Number: US-002147023-NVSC2023US247809

PATIENT
  Sex: Female
  Weight: 124.28 kg

DRUGS (4)
  1. COSENTYX [Suspect]
     Active Substance: SECUKINUMAB
     Indication: Spondyloarthropathy
     Dosage: UNK
     Route: 065
  2. COSENTYX [Suspect]
     Active Substance: SECUKINUMAB
     Indication: Ankylosing spondylitis
  3. COSENTYX [Suspect]
     Active Substance: SECUKINUMAB
     Indication: Sacroiliitis
  4. OXYCODONE [Concomitant]
     Active Substance: OXYCODONE
     Indication: Fibromyalgia
     Dosage: UNK
     Route: 065

REACTIONS (3)
  - Osteoarthritis [Unknown]
  - Muscle spasms [Unknown]
  - Therapeutic product effect incomplete [Unknown]
